FAERS Safety Report 5639102-0 (Version None)
Quarter: 2008Q1

REPORT INFORMATION
  Report Type: 
  Country: None (occurrence: None)
  Receive Date: 20080226
  Receipt Date: 20080212
  Transmission Date: 20080703
  Serious: Yes (Hospitalization)
  Sender: FDA-Public Use
  Company Number: US-ELI_LILLY_AND_COMPANY-US200802002433

PATIENT
  Sex: Male

DRUGS (2)
  1. FORTEO [Suspect]
     Indication: BONE DENSITY DECREASED
     Dates: start: 20060701
  2. EPZICOM [Concomitant]
     Indication: HIV INFECTION

REACTIONS (3)
  - HIP ARTHROPLASTY [None]
  - MUSCLE SPASMS [None]
  - NEURALGIA [None]
